FAERS Safety Report 13717409 (Version 1)
Quarter: 2017Q3

REPORT INFORMATION
  Report Type: Spontaneous
  Country: None (occurrence: US)
  Receive Date: 20170703
  Receipt Date: 20170703
  Transmission Date: 20171127
  Serious: No
  Sender: FDA-Public Use
  Company Number: None

PATIENT
  Sex: Female

DRUGS (1)
  1. XELJANZ [Suspect]
     Active Substance: TOFACITINIB CITRATE
     Indication: MALAISE
     Dosage: 5MG TWICE DALY BY MOUTH
     Route: 048
     Dates: start: 20160615

REACTIONS (5)
  - Post procedural complication [None]
  - Infrequent bowel movements [None]
  - Abdominal distension [None]
  - Hernia [None]
  - Diarrhoea [None]
